FAERS Safety Report 16953272 (Version 3)
Quarter: 2020Q1

REPORT INFORMATION
  Report Type: Spontaneous
  Country: GB (occurrence: GB)
  Receive Date: 20191023
  Receipt Date: 20200211
  Transmission Date: 20200409
  Serious: Yes (Death, Other)
  Sender: FDA-Public Use
  Company Number: GB-MYLANLABS-2018M1016447

PATIENT
  Age: 67 Year
  Sex: Male

DRUGS (1)
  1. CLOZARIL [Suspect]
     Active Substance: CLOZAPINE
     Indication: SCHIZOPHRENIA
     Dosage: UNK
     Route: 048
     Dates: start: 20010701

REACTIONS (5)
  - Neutrophilia [Unknown]
  - Bladder cancer [Fatal]
  - Anaemia [Not Recovered/Not Resolved]
  - Dementia [Fatal]
  - Leukocytosis [Unknown]

NARRATIVE: CASE EVENT DATE: 20180307
